FAERS Safety Report 25975510 (Version 1)
Quarter: 2025Q4

REPORT INFORMATION
  Report Type: Spontaneous
  Country: EU (occurrence: EU)
  Receive Date: 20251029
  Receipt Date: 20251029
  Transmission Date: 20260118
  Serious: Yes (Hospitalization)
  Sender: ELI LILLY AND COMPANY
  Company Number: EU-ELI_LILLY_AND_COMPANY-FR202510023009

PATIENT
  Age: 77 Year
  Sex: Male

DRUGS (22)
  1. GEMZAR [Suspect]
     Active Substance: GEMCITABINE HYDROCHLORIDE
     Indication: Lung adenocarcinoma
     Dosage: 2230 MG, SINGLE
     Route: 042
     Dates: start: 20250814, end: 20250814
  2. PEMBROLIZUMAB [Suspect]
     Active Substance: PEMBROLIZUMAB
     Indication: Lung adenocarcinoma
     Dosage: 200 MG, MONTHLY (1/M)
     Route: 042
     Dates: start: 20250213
  3. PEMBROLIZUMAB [Suspect]
     Active Substance: PEMBROLIZUMAB
     Dosage: 200 MG, MONTHLY (1/M)
     Route: 042
     Dates: start: 20250327
  4. PEMBROLIZUMAB [Suspect]
     Active Substance: PEMBROLIZUMAB
     Dosage: 200 MG, MONTHLY (1/M)
     Route: 042
     Dates: start: 20250424
  5. PEMBROLIZUMAB [Suspect]
     Active Substance: PEMBROLIZUMAB
     Dosage: 200 MG, MONTHLY (1/M)
     Route: 042
     Dates: start: 20250527
  6. PEMBROLIZUMAB [Suspect]
     Active Substance: PEMBROLIZUMAB
     Dosage: 200 MG, MONTHLY (1/M)
     Route: 042
     Dates: start: 20250611
  7. CARBOPLATIN [Suspect]
     Active Substance: CARBOPLATIN
     Indication: Lung adenocarcinoma
     Dosage: 80 MG/M2, WEEKLY (1/W)
     Route: 065
     Dates: start: 20220812, end: 20220929
  8. CARBOPLATIN [Suspect]
     Active Substance: CARBOPLATIN
     Dosage: 80 MG/M2, WEEKLY (1/W)
     Route: 065
     Dates: start: 20250213
  9. CARBOPLATIN [Suspect]
     Active Substance: CARBOPLATIN
     Dosage: 510 MG, UNKNOWN
     Route: 065
     Dates: start: 20250227
  10. CARBOPLATIN [Suspect]
     Active Substance: CARBOPLATIN
     Dosage: 530 MG, UNKNOWN
     Route: 065
     Dates: start: 20250313
  11. CARBOPLATIN [Suspect]
     Active Substance: CARBOPLATIN
     Dosage: 530 MG, UNKNOWN
     Route: 065
     Dates: start: 20250410
  12. CARBOPLATIN [Suspect]
     Active Substance: CARBOPLATIN
     Dosage: 530 MG, UNKNOWN
     Route: 065
     Dates: start: 20250513, end: 20250513
  13. TAXOL [Suspect]
     Active Substance: PACLITAXEL
     Indication: Lung adenocarcinoma
     Dosage: 171 MG, WEEKLY (1/W)
     Route: 065
     Dates: start: 20250220
  14. TAXOL [Suspect]
     Active Substance: PACLITAXEL
     Dosage: 171 MG, UNKNOWN
     Route: 065
     Dates: start: 20250320
  15. TAXOL [Suspect]
     Active Substance: PACLITAXEL
     Dosage: 171 MG, UNKNOWN
     Route: 065
     Dates: start: 20250313
  16. TAXOL [Suspect]
     Active Substance: PACLITAXEL
     Dosage: 171 MG, UNKNOWN
     Route: 065
     Dates: start: 20250327
  17. TAXOL [Suspect]
     Active Substance: PACLITAXEL
     Dosage: 171 MG, UNKNOWN
     Route: 065
     Dates: start: 20250410
  18. TAXOL [Suspect]
     Active Substance: PACLITAXEL
     Dosage: 171 MG, UNKNOWN
     Route: 065
     Dates: start: 20250424
  19. TAXOL [Suspect]
     Active Substance: PACLITAXEL
     Dosage: 171 MG, UNKNOWN
     Route: 065
     Dates: start: 20250417
  20. TAXOL [Suspect]
     Active Substance: PACLITAXEL
     Dosage: 171 MG, UNKNOWN
     Route: 065
     Dates: start: 20250513
  21. TAXOL [Suspect]
     Active Substance: PACLITAXEL
     Dosage: 171 MG, UNKNOWN
     Route: 065
     Dates: start: 20250514
  22. TAXOL [Suspect]
     Active Substance: PACLITAXEL
     Dosage: 171 MG, UNKNOWN
     Route: 065
     Dates: start: 20250520

REACTIONS (4)
  - Eosinophilia [Recovering/Resolving]
  - Rash macular [Unknown]
  - Asthenia [Unknown]
  - Drug intolerance [Unknown]

NARRATIVE: CASE EVENT DATE: 20250801
